FAERS Safety Report 5588052-7 (Version None)
Quarter: 2008Q1

REPORT INFORMATION
  Report Type: 
  Country: None (occurrence: None)
  Receive Date: 20080109
  Receipt Date: 20080109
  Transmission Date: 20080703
  Serious: No
  Sender: FDA-Public Use
  Company Number: None

PATIENT
  Age: 53 Year

DRUGS (1)
  1. SIMVASTATIN [Suspect]
     Indication: DYSLIPIDAEMIA
     Dosage: 20MG DAILY

REACTIONS (3)
  - INFLUENZA LIKE ILLNESS [None]
  - MALAISE [None]
  - PAIN IN EXTREMITY [None]
